FAERS Safety Report 7031630-9 (Version None)
Quarter: 2010Q4

REPORT INFORMATION
  Report Type: 
  Country: None (occurrence: None)
  Receive Date: 20101006
  Receipt Date: 20101006
  Transmission Date: 20110411
  Serious: No
  Sender: FDA-Public Use
  Company Number: None

PATIENT
  Sex: Male
  Weight: 15.3 kg

DRUGS (7)
  1. CYCLOPHOSPHAMIDE [Suspect]
     Dosage: 630 MG
  2. CYTARABINE [Suspect]
     Dosage: 376 MG
  3. DEXAMETHASONE [Suspect]
     Dosage: 92.4 MG
     Dates: end: 20091125
  4. DOXORUBICIN HYDROCHLORIDE [Suspect]
     Dosage: 49.5 MG
     Dates: end: 20091118
  5. METHOTREXATE [Suspect]
     Dosage: 36 MG
     Dates: end: 20091112
  6. THIOGUANINE [Suspect]
  7. VINCRISTINE SULFATE [Suspect]
     Dates: end: 20091125

REACTIONS (2)
  - HYPERBILIRUBINAEMIA [None]
  - NEUTROPHIL COUNT ABNORMAL [None]
